FAERS Safety Report 18184519 (Version 1)
Quarter: 2020Q3

REPORT INFORMATION
  Report Type: Spontaneous
  Country: IN (occurrence: IN)
  Receive Date: 20200824
  Receipt Date: 20200824
  Transmission Date: 20201103
  Serious: Yes (Hospitalization, Other)
  Sender: FDA-Public Use
  Company Number: IN-CIPLA LTD.-2020IN05761

PATIENT

DRUGS (1)
  1. AMLODIPINE [Suspect]
     Active Substance: AMLODIPINE BESYLATE
     Dosage: 400 MG IN TOTAL (80 TABLETS)
     Route: 048

REACTIONS (10)
  - Dizziness [Unknown]
  - Somnolence [Unknown]
  - Overdose [Unknown]
  - Tachypnoea [Unknown]
  - Vomiting [Unknown]
  - Sinus tachycardia [Unknown]
  - Hypotension [Recovering/Resolving]
  - Toxicity to various agents [Unknown]
  - Ejection fraction decreased [Unknown]
  - Pulmonary oedema [Unknown]
